FAERS Safety Report 8553011 (Version 2)
Quarter: 2013Q2

REPORT INFORMATION
  Report Type: Spontaneous
  Country: US (occurrence: None)
  Receive Date: 20120329
  Receipt Date: 20130401
  Transmission Date: 20140414
  Serious: Yes (Hospitalization)
  Sender: FDA-Public Use
  Company Number: PHHY2010US13336

PATIENT
  Age: 80 Year
  Sex: Male

DRUGS (1)
  1. EXELON [Suspect]
     Indication: DEMENTIA
     Dosage: 6 PATCHES ON, TRANSDERMAL
     Route: 062

REACTIONS (3)
  - VOMITING [None]
  - OVERDOSE [None]
  - Incorrect dose administered [None]
